FAERS Safety Report 6847582-8 (Version None)
Quarter: 2010Q3

REPORT INFORMATION
  Report Type: 
  Country: None (occurrence: None)
  Receive Date: 20100714
  Receipt Date: 20100701
  Transmission Date: 20110219
  Serious: Yes (Hospitalization)
  Sender: FDA-Public Use
  Company Number: UTC-001226

PATIENT
  Age: 67 Year
  Sex: Female

DRUGS (1)
  1. REMODULIN [Suspect]
     Indication: PULMONARY HYPERTENSION
     Dosage: SUBCUTANEOUS
     Route: 058

REACTIONS (7)
  - DISEASE PROGRESSION [None]
  - DYSPNOEA [None]
  - INFUSION SITE ERYTHEMA [None]
  - INFUSION SITE HAEMORRHAGE [None]
  - INFUSION SITE INFECTION [None]
  - INFUSION SITE PAIN [None]
  - PULMONARY HYPERTENSION [None]
